FAERS Safety Report 11209581 (Version 2)
Quarter: 2015Q4

REPORT INFORMATION
  Report Type: Spontaneous
  Country: JP (occurrence: JP)
  Receive Date: 20150622
  Receipt Date: 20151005
  Transmission Date: 20160304
  Serious: Yes (Death)
  Sender: FDA-Public Use
  Company Number: JP-TEVA-570766ISR

PATIENT
  Age: 78 Year
  Sex: Male
  Weight: 46 kg

DRUGS (11)
  1. ONEDURO [Concomitant]
     Active Substance: FENTANYL
     Dosage: 1.7 MILLIGRAM DAILY;
     Route: 062
     Dates: start: 20141205, end: 20141212
  2. METGLUCO [Concomitant]
     Active Substance: METFORMIN HYDROCHLORIDE
     Indication: TYPE 2 DIABETES MELLITUS
     Dosage: 750 MILLIGRAM DAILY;
     Route: 048
     Dates: end: 20141211
  3. BAYASPIRIN [Concomitant]
     Active Substance: ASPIRIN
     Indication: ANGINA PECTORIS
     Dosage: 100 MILLIGRAM DAILY;
     Route: 048
     Dates: end: 20141211
  4. E-FEN BUCCAL [Suspect]
     Active Substance: FENTANYL CITRATE
     Indication: BREAKTHROUGH PAIN
     Dosage: DAILY DOSE 50UGR-200UGR
     Route: 002
     Dates: start: 20141205, end: 20141210
  5. ONEDURO [Concomitant]
     Active Substance: FENTANYL
     Indication: CANCER PAIN
     Dosage: .84 MILLIGRAM DAILY;
     Route: 062
     Dates: end: 20141212
  6. AMARYL [Concomitant]
     Active Substance: GLIMEPIRIDE
     Dosage: 2 MILLIGRAM DAILY;
     Route: 048
     Dates: end: 20141211
  7. LIDOCAINE. [Concomitant]
     Active Substance: LIDOCAINE
     Indication: CANCER PAIN
     Dosage: 120 MILLIGRAM DAILY;
     Route: 058
     Dates: start: 20141201, end: 20141206
  8. LAC-B [Concomitant]
     Active Substance: BIFIDOBACTERIUM SPP.
     Indication: PROPHYLAXIS
     Dosage: 3 GRAM DAILY;
     Route: 048
     Dates: end: 20141211
  9. JANUVIA [Concomitant]
     Active Substance: SITAGLIPTIN PHOSPHATE
     Indication: TYPE 2 DIABETES MELLITUS
     Dosage: 50 MILLIGRAM DAILY;
     Route: 048
     Dates: end: 20141211
  10. OXINORM [Concomitant]
     Active Substance: OXYCODONE HYDROCHLORIDE
     Indication: CANCER PAIN
     Dosage: 5 MILLIGRAM DAILY;
     Route: 048
     Dates: start: 20141205, end: 20141211
  11. RELIFEN [Concomitant]
     Active Substance: NABUMETONE
     Indication: CANCER PAIN
     Dosage: 800 MILLIGRAM DAILY;
     Route: 048
     Dates: end: 20141211

REACTIONS (1)
  - Hepatic angiosarcoma [Fatal]

NARRATIVE: CASE EVENT DATE: 20141211
